FAERS Safety Report 8111407-3 (Version None)
Quarter: 2012Q1

REPORT INFORMATION
  Report Type: 
  Country: None (occurrence: None)
  Receive Date: 20120203
  Receipt Date: 20111115
  Transmission Date: 20120608
  Serious: Yes (Other)
  Sender: FDA-Public Use
  Company Number: US-GLAXOSMITHKLINE-A0953407A

PATIENT
  Age: 42 Year
  Sex: Female

DRUGS (6)
  1. TOPAMAX [Concomitant]
     Indication: EPILEPSY
     Dosage: 25MG PER DAY
     Dates: start: 20100101
  2. LAMICTAL [Suspect]
     Indication: EPILEPSY
     Route: 048
  3. TRILEPTAL [Concomitant]
     Indication: EPILEPSY
     Dosage: 1200MGD PER DAY
     Dates: start: 20090101
  4. DEPAKOTE [Concomitant]
     Indication: EPILEPSY
  5. DILANTIN [Concomitant]
     Indication: EPILEPSY
  6. TRAZODONE HCL [Concomitant]

REACTIONS (2)
  - CONVULSION [None]
  - DRUG INEFFECTIVE [None]
